FAERS Safety Report 18619989 (Version 2)
Quarter: 2020Q4

REPORT INFORMATION
  Report Type: Report from Study
  Country: BR (occurrence: BR)
  Receive Date: 20201215
  Receipt Date: 20201222
  Transmission Date: 20210114
  Serious: Yes (Other)
  Sender: FDA-Public Use
  Company Number: NVSC2020BR328528

PATIENT
  Sex: Male

DRUGS (4)
  1. DIOVAN [Suspect]
     Active Substance: VALSARTAN
     Dosage: 40 MG, BID (ONE TABLET IN THE MORNING AND OTHER AT NIGHT)
     Route: 065
  2. CONCARDIO [Suspect]
     Active Substance: BISOPROLOL FUMARATE
     Dosage: DOSE REDUCED TO HALF
     Route: 065
  3. DIOVAN [Suspect]
     Active Substance: VALSARTAN
     Indication: PRODUCT USED FOR UNKNOWN INDICATION
     Dosage: 80 MG, BID, 28 TABLETS (IN THE MORNING)
     Route: 065
  4. CONCARDIO [Suspect]
     Active Substance: BISOPROLOL FUMARATE
     Indication: HYPOTENSION
     Dosage: QD (AT NIGHT)
     Route: 065
     Dates: start: 202011

REACTIONS (13)
  - Helicobacter infection [Unknown]
  - Burn oesophageal [Unknown]
  - Ischaemia [Unknown]
  - Hypertension [Recovered/Resolved]
  - Malaise [Unknown]
  - Drug ineffective [Unknown]
  - Arteriosclerosis [Unknown]
  - Feeling abnormal [Unknown]
  - Somnolence [Unknown]
  - Blood pressure decreased [Unknown]
  - Blood pressure abnormal [Unknown]
  - Incorrect dose administered [Unknown]
  - Wrong technique in product usage process [Unknown]

NARRATIVE: CASE EVENT DATE: 2020
